FAERS Safety Report 4425187-6 (Version None)
Quarter: 2004Q3

REPORT INFORMATION
  Report Type: 
  Country: None (occurrence: None)
  Receive Date: 20040812
  Receipt Date: 20040812
  Transmission Date: 20050211
  Serious: Yes (Hospitalization)
  Sender: FDA-Public Use
  Company Number: None

PATIENT
  Age: 56 Year
  Sex: Male
  Weight: 89.1 kg

DRUGS (4)
  1. INDOMETHACIN 25MG CAP [Suspect]
     Indication: BACK PAIN
     Dosage: 25 MG TID ORAL
     Route: 048
  2. GOODY POWDER -OTC- [Suspect]
     Indication: BACK PAIN
  3. RANITIDINE [Concomitant]
  4. SILDENAFIL [Concomitant]

REACTIONS (7)
  - ASTHENIA [None]
  - DIZZINESS [None]
  - FAECES DISCOLOURED [None]
  - GASTRIC ULCER HAEMORRHAGE [None]
  - HAEMATOCRIT DECREASED [None]
  - HAEMOGLOBIN DECREASED [None]
  - SYNCOPE [None]
